FAERS Safety Report 17795154 (Version 1)
Quarter: 2020Q2

REPORT INFORMATION
  Report Type: Spontaneous
  Country: FR (occurrence: FR)
  Receive Date: 20200515
  Receipt Date: 20200515
  Transmission Date: 20200714
  Serious: Yes (Hospitalization)
  Sender: FDA-Public Use
  Company Number: FR-BAUSCH-BL-2020-014056

PATIENT
  Age: 56 Year
  Sex: Male
  Weight: 93 kg

DRUGS (5)
  1. GEMCITABINE. [Suspect]
     Active Substance: GEMCITABINE
     Indication: LYMPHOMA
     Route: 042
     Dates: start: 20200325, end: 20200401
  2. ONCASPAR [Suspect]
     Active Substance: PEGASPARGASE
     Indication: LYMPHOMA
     Dosage: 1 (UNIT UNSPECIFIED), ONCE TOTAL
     Route: 042
     Dates: start: 20200326, end: 20200326
  3. METHOTREXATE. [Suspect]
     Active Substance: METHOTREXATE
     Indication: LYMPHOMA
     Dosage: 1 (UNIT UNSPECIFIED), ONCE TOTAL
     Route: 042
     Dates: start: 20200325, end: 20200325
  4. DEXAMETHASONE. [Suspect]
     Active Substance: DEXAMETHASONE
     Indication: LYMPHOMA
     Route: 042
     Dates: start: 20200325, end: 20200407
  5. OXALIPLATINE [Suspect]
     Active Substance: OXALIPLATIN
     Indication: LYMPHOMA
     Dosage: 1 (UNIT UNSPECIFIED), ONCE TOTAL
     Route: 042
     Dates: start: 20200326, end: 20200326

REACTIONS (2)
  - Hepatocellular injury [Not Recovered/Not Resolved]
  - Cholestasis [Not Recovered/Not Resolved]

NARRATIVE: CASE EVENT DATE: 20200328
